FAERS Safety Report 7755077-2 (Version None)
Quarter: 2011Q3

REPORT INFORMATION
  Report Type: 
  Country: None (occurrence: None)
  Receive Date: 20110916
  Receipt Date: 20110906
  Transmission Date: 20111222
  Serious: Yes (Other)
  Sender: FDA-Public Use
  Company Number: US-ELI_LILLY_AND_COMPANY-US201107002230

PATIENT
  Sex: Female
  Weight: 52.608 kg

DRUGS (3)
  1. FORTEO [Suspect]
     Indication: OSTEOPOROSIS
     Dosage: 20 UG, QD
     Route: 065
     Dates: start: 20100605
  2. ANTIHYPERTENSIVES [Concomitant]
  3. FORTEO [Suspect]
     Dosage: 20 UG, QD
     Route: 065

REACTIONS (7)
  - GAIT DISTURBANCE [None]
  - ARTHRALGIA [None]
  - DIZZINESS [None]
  - LOWER LIMB FRACTURE [None]
  - PUBIS FRACTURE [None]
  - PAIN [None]
  - PAIN IN EXTREMITY [None]
